FAERS Safety Report 7084266-8 (Version None)
Quarter: 2010Q4

REPORT INFORMATION
  Report Type: 
  Country: None (occurrence: None)
  Receive Date: 20101104
  Receipt Date: 20101025
  Transmission Date: 20110411
  Serious: Yes (Other)
  Sender: FDA-Public Use
  Company Number: FR-PFIZER INC-2010136136

PATIENT
  Age: 61 Year
  Sex: Female

DRUGS (5)
  1. XANAX [Suspect]
     Dosage: UNK
     Route: 048
  2. CLASTOBAN [Suspect]
     Indication: BREAST CANCER METASTATIC
     Dosage: 1600 MG PER DAY
     Dates: start: 20020101, end: 20100920
  3. FEMARA [Suspect]
     Indication: BREAST CANCER METASTATIC
     Dosage: 2.5 MG PER DAY
     Route: 048
     Dates: start: 20020101
  4. FARMORUBICINE [Concomitant]
     Indication: BREAST CANCER METASTATIC
     Dosage: UNK
  5. TAXOTERE [Concomitant]
     Indication: BREAST CANCER METASTATIC
     Dosage: UNK

REACTIONS (1)
  - OSTEONECROSIS OF JAW [None]
